FAERS Safety Report 8031316-8 (Version None)
Quarter: 2012Q1

REPORT INFORMATION
  Report Type: 
  Country: None (occurrence: None)
  Receive Date: 20120109
  Receipt Date: 20120105
  Transmission Date: 20120608
  Serious: Yes (Disabling)
  Sender: FDA-Public Use
  Company Number: US-GLAXOSMITHKLINE-A0960232A

PATIENT
  Age: 72 Year
  Sex: Female

DRUGS (5)
  1. SIMVASTATIN [Concomitant]
  2. LAMOTRIGINE [Suspect]
     Indication: EPILEPSY
     Dosage: 50MG TWICE PER DAY
     Route: 048
     Dates: start: 20111223
  3. ASPIRIN [Concomitant]
  4. TRAZODONE HCL [Concomitant]
  5. GABAPENTIN [Concomitant]

REACTIONS (4)
  - GAIT DISTURBANCE [None]
  - DIZZINESS [None]
  - BALANCE DISORDER [None]
  - HEADACHE [None]
